FAERS Safety Report 24421908 (Version 2)
Quarter: 2024Q4

REPORT INFORMATION
  Report Type: Spontaneous
  Country: PL (occurrence: PL)
  Receive Date: 20241010
  Receipt Date: 20241017
  Transmission Date: 20250114
  Serious: Yes (Other)
  Sender: ALEXION PHARMACEUTICALS
  Company Number: PL-AstraZeneca-CH-00712420A

PATIENT

DRUGS (10)
  1. TICAGRELOR [Suspect]
     Active Substance: TICAGRELOR
  2. TICAGRELOR [Suspect]
     Active Substance: TICAGRELOR
  3. TICAGRELOR [Suspect]
     Active Substance: TICAGRELOR
  4. TICAGRELOR [Suspect]
     Active Substance: TICAGRELOR
  5. ACARD [Concomitant]
  6. ACARD [Concomitant]
     Route: 065
  7. CLOPIDOGREL [Concomitant]
     Active Substance: CLOPIDOGREL BISULFATE
     Route: 065
  8. CLOPIDOGREL [Concomitant]
     Active Substance: CLOPIDOGREL BISULFATE
  9. CLOPIDOGREL [Concomitant]
     Active Substance: CLOPIDOGREL BISULFATE
     Route: 065
  10. CLOPIDOGREL [Concomitant]
     Active Substance: CLOPIDOGREL BISULFATE

REACTIONS (6)
  - Contusion [Unknown]
  - Contusion [Unknown]
  - Epistaxis [Unknown]
  - Mobility decreased [Unknown]
  - Head injury [Unknown]
  - Subarachnoid haematoma [Unknown]
